FAERS Safety Report 5595223-2 (Version None)
Quarter: 2008Q1

REPORT INFORMATION
  Report Type: 
  Country: None (occurrence: None)
  Receive Date: 20080117
  Receipt Date: 20080108
  Transmission Date: 20080703
  Serious: Yes (Other)
  Sender: FDA-Public Use
  Company Number: PFIZER INC-2007094841

PATIENT
  Sex: Female
  Weight: 57.6 kg

DRUGS (7)
  1. CHANTIX [Suspect]
     Indication: SMOKING CESSATION THERAPY
     Dates: start: 20071025, end: 20071025
  2. PREDNISONE TAB [Concomitant]
  3. CRESTOR [Concomitant]
  4. ALL OTHER THERAPEUTIC PRODUCTS [Concomitant]
  5. ASPIRIN [Concomitant]
  6. LORTAB [Concomitant]
  7. BENICAR [Concomitant]

REACTIONS (6)
  - AGGRESSION [None]
  - ANGER [None]
  - DISORIENTATION [None]
  - HEADACHE [None]
  - IRRITABILITY [None]
  - SELF ESTEEM DECREASED [None]
